FAERS Safety Report 7256776-1 (Version None)
Quarter: 2011Q1

REPORT INFORMATION
  Report Type: 
  Country: None (occurrence: None)
  Receive Date: 20110129
  Receipt Date: 20100712
  Transmission Date: 20110831
  Serious: Yes (Other)
  Sender: FDA-Public Use
  Company Number: US-ABBOTT-10P-163-0656893-00

PATIENT
  Sex: Female
  Weight: 77.18 kg

DRUGS (16)
  1. FOLIC ACID [Concomitant]
     Indication: PRODUCT USED FOR UNKNOWN INDICATION
  2. MAGNESIUM WITH ZINC [Concomitant]
     Indication: BONE DISORDER
  3. ACIPHEX [Concomitant]
     Indication: GASTROOESOPHAGEAL REFLUX DISEASE
  4. HUMIRA [Suspect]
     Indication: RHEUMATOID ARTHRITIS
     Dates: start: 20090101, end: 20100101
  5. HUMIRA [Suspect]
     Indication: PSORIASIS
     Dates: start: 20100301
  6. MAGNESIUM WITH ZINC [Concomitant]
     Indication: HOT FLUSH
  7. CALCIUM W/VITAMIN D [Concomitant]
     Indication: PRODUCT USED FOR UNKNOWN INDICATION
  8. HYDROCHLOROTHIAZIDE [Concomitant]
     Indication: PRODUCT USED FOR UNKNOWN INDICATION
     Dosage: EVERY MORNING
  9. MELOXICAM [Concomitant]
     Indication: PAIN
  10. AMLODIPINE [Concomitant]
     Indication: HYPERTENSION
     Dosage: 10 MG IN MORNING, 5 MG AT NIGHT
  11. METOPROLOL [Concomitant]
     Indication: PRODUCT USED FOR UNKNOWN INDICATION
  12. LOVASTATIN [Concomitant]
     Indication: BLOOD CHOLESTEROL INCREASED
     Dosage: EVERY NIGHT
  13. FOSAMAX [Suspect]
     Indication: OSTEOPOROSIS
  14. METHOTREXATE [Concomitant]
     Indication: PRODUCT USED FOR UNKNOWN INDICATION
     Dosage: FORM STRENGTH:  2.5 MG
  15. GABAPENTIN [Concomitant]
     Indication: PRODUCT USED FOR UNKNOWN INDICATION
     Dosage: 300 MG IN MORNING, 300 MG DURING LUNCH, 400 MG AT NIGHT
  16. ESTRACE [Concomitant]
     Indication: MENOPAUSE

REACTIONS (3)
  - INJECTION SITE HAEMATOMA [None]
  - FRACTURE [None]
  - INJECTION SITE PAIN [None]
